FAERS Safety Report 9467899 (Version 2)
Quarter: 2013Q3

REPORT INFORMATION
  Report Type: Report from Study
  Country: ZA (occurrence: ZA)
  Receive Date: 20130821
  Receipt Date: 20130821
  Transmission Date: 20140515
  Serious: Yes (Hospitalization)
  Sender: FDA-Public Use
  Company Number: ZA-CELGENEUS-143-50794-13062240

PATIENT
  Age: 78 Year
  Sex: Female
  Weight: 72.8 kg

DRUGS (12)
  1. VIDAZA [Suspect]
     Indication: MYELODYSPLASTIC SYNDROME
     Dosage: 127.5 MILLIGRAM
     Route: 065
     Dates: start: 20130513, end: 20130519
  2. VIDAZA [Suspect]
     Route: 065
     Dates: start: 20130610
  3. PREXIUM PLUS [Concomitant]
     Indication: HYPERTENSION
     Dosage: 4 MILLIGRAM
     Route: 065
  4. PURICOS [Concomitant]
     Indication: PROPHYLAXIS
     Dosage: 300 MILLIGRAM
     Route: 065
  5. ELTROXIN [Concomitant]
     Indication: HYPOTHYROIDISM
     Dosage: .1 MILLIGRAM
     Route: 065
  6. ELTROXIN [Concomitant]
     Route: 065
     Dates: start: 201305
  7. ALTOSEC [Concomitant]
     Indication: PROPHYLAXIS
     Route: 048
  8. AREM [Concomitant]
     Indication: DEPRESSION
     Dosage: 1/2
     Route: 065
     Dates: end: 201305
  9. CILIFT [Concomitant]
     Indication: DEPRESSION
     Route: 065
  10. CILIFT [Concomitant]
     Route: 065
     Dates: start: 201305
  11. TRAMACET [Concomitant]
     Indication: DEPRESSION
     Route: 065
     Dates: end: 201305
  12. B CARD [Concomitant]
     Indication: VITAMIN SUPPLEMENTATION
     Route: 048

REACTIONS (3)
  - Confusional state [Recovered/Resolved]
  - Thrombocytopenia [Recovered/Resolved]
  - Anaemia [Recovered/Resolved]
